FAERS Safety Report 12197901 (Version 1)
Quarter: 2016Q1

REPORT INFORMATION
  Report Type: Spontaneous
  Country: US (occurrence: None)
  Receive Date: 20160321
  Receipt Date: 20160321
  Transmission Date: 20160526
  Serious: Yes (Other)
  Sender: FDA-Public Use
  Company Number: None

PATIENT
  Age: 55 Year
  Sex: Female
  Weight: 50 kg

DRUGS (3)
  1. ATORVASTATIN [Concomitant]
     Active Substance: ATORVASTATIN
  2. PLIAGLIS [Suspect]
     Active Substance: LIDOCAINE\TETRACAINE
     Indication: SKIN DISORDER
     Dosage: 30 G ONCE APPLIED TO A SURFACE, USUALLY THE SKIN
  3. VYVANSE [Concomitant]
     Active Substance: LISDEXAMFETAMINE DIMESYLATE

REACTIONS (9)
  - Asthenia [None]
  - Vision blurred [None]
  - Application site hypoaesthesia [None]
  - Nausea [None]
  - Mydriasis [None]
  - Heart rate increased [None]
  - Dizziness [None]
  - Heart rate decreased [None]
  - Activities of daily living impaired [None]

NARRATIVE: CASE EVENT DATE: 20160318
